FAERS Safety Report 7271551-X (Version None)
Quarter: 2011Q1

REPORT INFORMATION
  Report Type: 
  Country: None (occurrence: None)
  Receive Date: 20110128
  Receipt Date: 20110128
  Transmission Date: 20110831
  Serious: Yes (Other)
  Sender: FDA-Public Use
  Company Number: None

PATIENT
  Age: 38 Year
  Sex: Female
  Weight: 83.9154 kg

DRUGS (1)
  1. ELECTRONIC CINGARETTE 14MG NICOTINE [Suspect]
     Indication: SMOKING CESSATION THERAPY
     Dosage: 2-3 PUFFS EVERY 2-3 HOURS
     Dates: start: 20110118, end: 20110124

REACTIONS (10)
  - CHEST PAIN [None]
  - SOMNOLENCE [None]
  - MALAISE [None]
  - ABDOMINAL PAIN UPPER [None]
  - DIARRHOEA [None]
  - HEADACHE [None]
  - INJURY [None]
  - TOBACCO POISONING [None]
  - DYSSTASIA [None]
  - GAIT DISTURBANCE [None]
